FAERS Safety Report 7981386-8 (Version None)
Quarter: 2011Q4

REPORT INFORMATION
  Report Type: 
  Country: None (occurrence: None)
  Receive Date: 20111215
  Receipt Date: 20111205
  Transmission Date: 20120403
  Serious: Yes (Other)
  Sender: FDA-Public Use
  Company Number: US-BAYER-2010-006373

PATIENT
  Age: 26 Year
  Sex: Female
  Weight: 76 kg

DRUGS (7)
  1. METFORMIN HCL [Concomitant]
     Dosage: 500 MG, QD
     Route: 048
  2. ATENOLOL [Concomitant]
     Dosage: 25 MG, BID
     Route: 048
  3. IBUPROFEN (ADVIL) [Concomitant]
     Dosage: UNK
     Dates: start: 20020101
  4. BACTROBAN [Concomitant]
     Dosage: UNK UNK, BID
  5. PRAVASTATIN SODIUM [Concomitant]
     Dosage: 20 MG, QD
     Route: 048
  6. YAZ [Suspect]
     Indication: CONTRACEPTION
     Dosage: UNK
     Route: 048
     Dates: start: 20080201, end: 20090301
  7. PREVACID [Concomitant]
     Dosage: 30 MG, QD
     Route: 048

REACTIONS (4)
  - GALLBLADDER NON-FUNCTIONING [None]
  - ECTOPIC PREGNANCY [None]
  - BILIARY DYSKINESIA [None]
  - PAIN [None]
